FAERS Safety Report 18540337 (Version 2)
Quarter: 2020Q4

REPORT INFORMATION
  Report Type: Spontaneous
  Country: US (occurrence: US)
  Receive Date: 20201124
  Receipt Date: 20201125
  Transmission Date: 20210114
  Serious: Yes (Other)
  Sender: FDA-Public Use
  Company Number: US-009507513-2011USA012189

PATIENT
  Age: 17 Year
  Sex: Female
  Weight: 43.99 kg

DRUGS (1)
  1. NEXPLANON [Suspect]
     Active Substance: ETONOGESTREL
     Dosage: 1 IMPLANT IN LEFT ARM (NON-DOMINANT ARM)
     Route: 059
     Dates: start: 2016, end: 20201118

REACTIONS (6)
  - Complication of device removal [Recovered/Resolved]
  - Incorrect product administration duration [Unknown]
  - Paraesthesia [Recovering/Resolving]
  - Device dislocation [Recovered/Resolved]
  - Complication associated with device [Recovered/Resolved]
  - Device issue [Recovered/Resolved]

NARRATIVE: CASE EVENT DATE: 2019
